FAERS Safety Report 11812680 (Version 1)
Quarter: 2015Q4

REPORT INFORMATION
  Report Type: Spontaneous
  Country: US (occurrence: US)
  Receive Date: 20151208
  Receipt Date: 20151208
  Transmission Date: 20160305
  Serious: No
  Sender: FDA-Public Use
  Company Number: US-ASTRAZENECA-2015SF12530

PATIENT
  Sex: Female

DRUGS (3)
  1. TUDORZA PRESSAIR [Suspect]
     Active Substance: ACLIDINIUM BROMIDE
     Dosage: 400 MCG, ONE INHALATION, TWO TIMES A DAY
     Route: 055
  2. SYMBICORT [Suspect]
     Active Substance: BUDESONIDE\FORMOTEROL FUMARATE DIHYDRATE
     Indication: CHRONIC OBSTRUCTIVE PULMONARY DISEASE
     Dosage: 160/4.5 MCG, 60 INHALATIONS, TWO TIMES A DAY
     Route: 055
     Dates: start: 20151116
  3. SPIRIVA [Concomitant]
     Active Substance: TIOTROPIUM BROMIDE MONOHYDRATE
     Indication: CHRONIC OBSTRUCTIVE PULMONARY DISEASE
     Route: 055

REACTIONS (9)
  - Device use error [Unknown]
  - Device malfunction [Unknown]
  - Product quality issue [Unknown]
  - Underdose [Unknown]
  - Tension [Unknown]
  - Incorrect product storage [Unknown]
  - Circumstance or information capable of leading to medication error [Unknown]
  - Anxiety [Unknown]
  - Intentional product misuse [Unknown]
